FAERS Safety Report 4787147-5 (Version None)
Quarter: 2005Q4

REPORT INFORMATION
  Report Type: 
  Country: None (occurrence: None)
  Receive Date: 20051004
  Receipt Date: 20050927
  Transmission Date: 20060501
  Serious: Yes (Disabling, Other)
  Sender: FDA-Public Use
  Company Number: US-MERCK-0509USA03977

PATIENT
  Age: 74 Year
  Sex: Female
  Weight: 95 kg

DRUGS (7)
  1. VYTORIN [Suspect]
     Indication: HYPERLIPIDAEMIA
     Route: 048
     Dates: start: 20050704, end: 20050731
  2. DILANTIN [Concomitant]
     Route: 065
  3. DOVONEX [Concomitant]
     Route: 065
  4. PROVERA [Concomitant]
     Route: 065
  5. LAMISIL [Concomitant]
     Route: 065
  6. PREMARIN [Concomitant]
     Route: 065
  7. CALCIUM (UNSPECIFIED) [Concomitant]
     Route: 065

REACTIONS (3)
  - OEDEMA PERIPHERAL [None]
  - SKIN EXFOLIATION [None]
  - URTICARIA [None]
